FAERS Safety Report 24977156 (Version 2)
Quarter: 2025Q1

REPORT INFORMATION
  Report Type: Spontaneous
  Country: JP (occurrence: JP)
  Receive Date: 20250217
  Receipt Date: 20250307
  Transmission Date: 20250408
  Serious: No
  Sender: ELI LILLY AND COMPANY
  Company Number: JP-ELI_LILLY_AND_COMPANY-JP202502009109

PATIENT
  Age: 65 Year
  Sex: Female

DRUGS (1)
  1. VERZENIO [Suspect]
     Active Substance: ABEMACICLIB
     Indication: Breast cancer recurrent
     Dosage: 300 MG, DAILY
     Route: 048

REACTIONS (1)
  - Hepatic function abnormal [Not Recovered/Not Resolved]
